FAERS Safety Report 7732113-0 (Version None)
Quarter: 2011Q3

REPORT INFORMATION
  Report Type: 
  Country: None (occurrence: None)
  Receive Date: 20110906
  Receipt Date: 20110808
  Transmission Date: 20111222
  Serious: No
  Sender: FDA-Public Use
  Company Number: US-AMGEN-USASP2011040636

PATIENT
  Sex: Female

DRUGS (6)
  1. LIPITOR [Concomitant]
  2. CALCIUM CARBONATE [Concomitant]
  3. VITAMIN D                          /00318501/ [Concomitant]
  4. PROLIA [Suspect]
     Indication: OSTEOPOROSIS POSTMENOPAUSAL
     Dosage: 60 MG, Q6MO
     Dates: start: 20101119
  5. MULTIVITAMIN                       /00097801/ [Concomitant]
  6. FISH OIL [Concomitant]

REACTIONS (1)
  - JOINT CREPITATION [None]
